FAERS Safety Report 7276154-9 (Version None)
Quarter: 2011Q1

REPORT INFORMATION
  Report Type: 
  Country: None (occurrence: None)
  Receive Date: 20110204
  Receipt Date: 20110125
  Transmission Date: 20110831
  Serious: Yes (Hospitalization)
  Sender: FDA-Public Use
  Company Number: PHHY2011NL06232

PATIENT
  Sex: Male

DRUGS (3)
  1. ZOMETA [Suspect]
     Dosage: UNK
     Route: 042
     Dates: start: 20101224
  2. ZOMETA [Suspect]
     Dosage: UNK
     Route: 042
     Dates: start: 20101125
  3. ZOMETA [Suspect]
     Indication: PROSTATE CANCER METASTATIC
     Dosage: UNK
     Route: 042
     Dates: start: 20100924

REACTIONS (1)
  - GENERAL PHYSICAL HEALTH DETERIORATION [None]
